FAERS Safety Report 16771854 (Version 2)
Quarter: 2019Q3

REPORT INFORMATION
  Report Type: Report from Study
  Country: None (occurrence: FR)
  Receive Date: 20190904
  Receipt Date: 20190913
  Transmission Date: 20191005
  Serious: Yes (Life-Threatening, Hospitalization, Other)
  Sender: FDA-Public Use
  Company Number: FR-ABBVIE-19P-056-2910347-00

PATIENT
  Age: 65 Year
  Sex: Female

DRUGS (10)
  1. INSULIN GLARGINE [Concomitant]
     Active Substance: INSULIN GLARGINE
     Indication: DIABETES MELLITUS
     Route: 058
     Dates: start: 2017
  2. POTASSIUM BICARBONATE. [Concomitant]
     Active Substance: POTASSIUM BICARBONATE
     Indication: HYPOKALAEMIA
     Dosage: DOSE: UN
     Route: 048
     Dates: start: 201708
  3. BISOPROLOL [Concomitant]
     Active Substance: BISOPROLOL
     Indication: HYPERTENSION
     Route: 048
     Dates: start: 201706
  4. PREGABALIN. [Concomitant]
     Active Substance: PREGABALIN
     Indication: ARTHRALGIA
     Route: 048
     Dates: start: 201806
  5. PREDNISONE. [Concomitant]
     Active Substance: PREDNISONE
     Route: 048
     Dates: start: 20190510
  6. MAVIRET [Suspect]
     Active Substance: GLECAPREVIR\PIBRENTASVIR
     Indication: CHRONIC HEPATITIS C
     Route: 048
     Dates: start: 20181004, end: 20181227
  7. INSULIN ASPARTATE [Concomitant]
     Active Substance: INSULIN ASPART
     Indication: DIABETES MELLITUS
     Route: 058
     Dates: start: 201801
  8. LETROZOLE. [Concomitant]
     Active Substance: LETROZOLE
     Indication: BREAST CANCER METASTATIC
     Route: 048
     Dates: start: 201707
  9. PREDNISONE. [Concomitant]
     Active Substance: PREDNISONE
     Indication: SCIATICA
     Route: 048
     Dates: start: 20190510
  10. OXYCODONE [Concomitant]
     Active Substance: OXYCODONE
     Indication: SCIATICA
     Route: 048
     Dates: start: 20190510

REACTIONS (1)
  - Arteriovenous graft site stenosis [Recovered/Resolved]

NARRATIVE: CASE EVENT DATE: 20190621
